FAERS Safety Report 5242713-8 (Version None)
Quarter: 2007Q1

REPORT INFORMATION
  Report Type: 
  Country: None (occurrence: None)
  Receive Date: 20070221
  Receipt Date: 20070216
  Transmission Date: 20070707
  Serious: Yes (Other)
  Sender: FDA-Public Use
  Company Number: US-GLAXOSMITHKLINE-A0640047A

PATIENT
  Age: 53 Year
  Sex: Female

DRUGS (2)
  1. PAXIL [Suspect]
     Indication: DRUG USE FOR UNKNOWN INDICATION
     Dosage: 10MG PER DAY
     Route: 048
     Dates: start: 20010101
  2. INDERAL [Concomitant]

REACTIONS (12)
  - AMNESIA [None]
  - DRY EYE [None]
  - EMOTIONAL DISTRESS [None]
  - EYE PAIN [None]
  - HEADACHE [None]
  - HYPERTENSION [None]
  - IRRITABLE BOWEL SYNDROME [None]
  - LOSS OF CONSCIOUSNESS [None]
  - SELF-INJURIOUS IDEATION [None]
  - SUICIDAL IDEATION [None]
  - TREMOR [None]
  - VISION BLURRED [None]
